FAERS Safety Report 10279986 (Version 2)
Quarter: 2014Q3

REPORT INFORMATION
  Report Type: Spontaneous
  Country: US (occurrence: US)
  Receive Date: 20140707
  Receipt Date: 20140722
  Transmission Date: 20150326
  Serious: Yes (Disabling)
  Sender: FDA-Public Use
  Company Number: US-009507513-1407USA000265

PATIENT
  Sex: Female

DRUGS (4)
  1. PEGINTRON [Suspect]
     Active Substance: PEGINTERFERON ALFA-2B
     Dosage: 150 MICROGRAM, ONCE WEEKLY;REDIPEN
     Route: 058
     Dates: start: 20140617
  2. REBETOL [Suspect]
     Active Substance: RIBAVIRIN
     Dosage: UNK
     Route: 048
  3. SOVALDI [Concomitant]
     Active Substance: SOFOSBUVIR
     Dosage: UNK
  4. PEGINTRON [Suspect]
     Active Substance: PEGINTERFERON ALFA-2B
     Indication: HEPATITIS C
     Dosage: 150 MICROGRAM, ONCE WEEKLY;REDIPEN
     Route: 058
     Dates: start: 20140515, end: 2014

REACTIONS (7)
  - Fatigue [Recovered/Resolved]
  - Injection site swelling [Unknown]
  - Lethargy [Unknown]
  - Injection site erythema [Unknown]
  - Fatigue [Unknown]
  - Injection site bruising [Unknown]
  - Nausea [Unknown]

NARRATIVE: CASE EVENT DATE: 2014
